FAERS Safety Report 20961615 (Version 3)
Quarter: 2022Q4

REPORT INFORMATION
  Report Type: Report from Study
  Country: CN (occurrence: CN)
  Receive Date: 20220615
  Receipt Date: 20221011
  Transmission Date: 20230113
  Serious: Yes (Hospitalization)
  Sender: FDA-Public Use
  Company Number: CN-NOVARTISPH-NVSC2022CN134204

PATIENT
  Age: 55 Year
  Sex: Female
  Weight: 55.8 kg

DRUGS (5)
  1. EVEROLIMUS [Suspect]
     Active Substance: EVEROLIMUS
     Indication: Breast cancer metastatic
     Dosage: 7.5 MG, TID (4 WEEKS AS A CYCLE TREATMENT)
     Route: 048
     Dates: start: 20210311
  2. EVEROLIMUS [Suspect]
     Active Substance: EVEROLIMUS
     Dosage: 7.5 MG, TID
     Route: 048
     Dates: start: 20220311
  3. EVEROLIMUS [Suspect]
     Active Substance: EVEROLIMUS
     Dosage: 7.5 MG, TID (4 WEEKS AS A CYCLE TREATMENT)
     Route: 048
     Dates: end: 20220522
  4. PACLITAXEL [Suspect]
     Active Substance: PACLITAXEL
     Indication: Breast cancer metastatic
     Dosage: 164 MG (ROUTE: IVGTT) (4 WEEKS AS A CYCLE TREATMENT)
     Route: 042
     Dates: start: 20210311, end: 20220602
  5. PACLITAXEL [Suspect]
     Active Substance: PACLITAXEL
     Dosage: 164 MG (IVGTT)
     Route: 042
     Dates: start: 20220311, end: 20220602

REACTIONS (3)
  - Hyponatraemia [Recovering/Resolving]
  - Hypokalaemia [Recovered/Resolved]
  - Inappropriate schedule of product administration [Unknown]

NARRATIVE: CASE EVENT DATE: 20220530
